FAERS Safety Report 13284941 (Version 1)
Quarter: 2017Q1

REPORT INFORMATION
  Report Type: Spontaneous
  Country: US (occurrence: US)
  Receive Date: 20170301
  Receipt Date: 20170301
  Transmission Date: 20170428
  Serious: Yes (Disabling, Other)
  Sender: FDA-Public Use
  Company Number: US-SA-2017SA006684

PATIENT
  Age: 48 Year
  Sex: Male

DRUGS (4)
  1. SOLOSTAR [Suspect]
     Active Substance: DEVICE
     Indication: TYPE 1 DIABETES MELLITUS
     Dates: start: 1997
  2. OXYCODONE [Concomitant]
     Active Substance: OXYCODONE
  3. NOVOLOG [Concomitant]
     Active Substance: INSULIN ASPART
  4. LANTUS SOLOSTAR [Suspect]
     Active Substance: INSULIN GLARGINE
     Indication: TYPE 1 DIABETES MELLITUS
     Dosage: DOSE:12 UNIT(S)
     Route: 065
     Dates: start: 1997

REACTIONS (7)
  - Suicide attempt [Unknown]
  - Fall [Unknown]
  - Product use issue [Unknown]
  - Mobility decreased [Unknown]
  - Wheelchair user [Unknown]
  - Hyperglycaemia [Unknown]
  - Device issue [Unknown]

NARRATIVE: CASE EVENT DATE: 2009
